FAERS Safety Report 6928353-0 (Version None)
Quarter: 2010Q3

REPORT INFORMATION
  Report Type: 
  Country: None (occurrence: None)
  Receive Date: 20100812
  Receipt Date: 20100804
  Transmission Date: 20110219
  Serious: Yes (Hospitalization)
  Sender: FDA-Public Use
  Company Number: 2010SP036616

PATIENT
  Age: 20 Year
  Sex: Female

DRUGS (3)
  1. IMPLANON [Suspect]
     Indication: CONTRACEPTION
     Dates: start: 20050101, end: 20080101
  2. IMPLANON [Suspect]
     Indication: CONTRACEPTION
     Dates: start: 20090618
  3. ANALGESIC [Concomitant]

REACTIONS (8)
  - ABORTION INCOMPLETE [None]
  - AMENORRHOEA [None]
  - DRUG DOSE OMISSION [None]
  - DRUG EXPOSURE DURING PREGNANCY [None]
  - FOOD CRAVING [None]
  - PREGNANCY ON ORAL CONTRACEPTIVE [None]
  - VAGINAL HAEMORRHAGE [None]
  - WEIGHT INCREASED [None]
